FAERS Safety Report 11882377 (Version 2)
Quarter: 2016Q3

REPORT INFORMATION
  Report Type: Spontaneous
  Country: JP (occurrence: JP)
  Receive Date: 20151231
  Receipt Date: 20160729
  Transmission Date: 20161109
  Serious: Yes (Hospitalization, Other)
  Sender: FDA-Public Use
  Company Number: JP-BRISTOL-MYERS SQUIBB COMPANY-BMS-2015-090554

PATIENT
  Age: 46 Year
  Sex: Female

DRUGS (2)
  1. FORXIGA [Suspect]
     Active Substance: DAPAGLIFLOZIN
     Indication: DIABETES MELLITUS
     Route: 048
  2. METGLUCO [Suspect]
     Active Substance: METFORMIN HYDROCHLORIDE
     Indication: DIABETES MELLITUS
     Dosage: 2000 MG, QD
     Route: 048

REACTIONS (6)
  - Pyrexia [Recovered/Resolved]
  - Pyelonephritis [Recovered/Resolved]
  - Depressed level of consciousness [Recovered/Resolved]
  - Septic shock [Recovered/Resolved]
  - Escherichia test positive [Recovered/Resolved]
  - Acute kidney injury [Recovered/Resolved]
